FAERS Safety Report 6742348-1 (Version None)
Quarter: 2010Q2

REPORT INFORMATION
  Report Type: 
  Country: None (occurrence: None)
  Receive Date: 20100526
  Receipt Date: 20100517
  Transmission Date: 20101027
  Serious: Yes (Other)
  Sender: FDA-Public Use
  Company Number: US-JNJCH-2009031504

PATIENT
  Age: 7 Year
  Sex: Male
  Weight: 18.6 kg

DRUGS (2)
  1. CHILDREN'S SUDAFED PE NASAL DECONGESTANT [Suspect]
     Indication: RHINORRHOEA
     Dosage: TEXT:ONE TSP - THREE TIMES TOTAL
     Route: 048
     Dates: start: 20090807, end: 20091204
  2. RINOCORT [Concomitant]
     Indication: NASAL DISORDER
     Dosage: TEXT:1 SPRAY PER NOSTRIL
     Route: 045

REACTIONS (1)
  - ANAPHYLACTIC REACTION [None]
